FAERS Safety Report 9791715 (Version 2)
Quarter: 2014Q1

REPORT INFORMATION
  Report Type: Report from Study
  Country: JP (occurrence: JP)
  Receive Date: 20140102
  Receipt Date: 20140331
  Transmission Date: 20141002
  Serious: Yes (Death)
  Sender: FDA-Public Use
  Company Number: JP-ROCHE-1325594

PATIENT
  Sex: Female

DRUGS (2)
  1. METHOXY POLYETHYLENE GLYCOL-EPOETIN BETA [Suspect]
     Indication: NEPHROGENIC ANAEMIA
     Route: 042
     Dates: start: 20120221, end: 20120618
  2. FESIN (JAPAN) [Concomitant]
     Indication: GLOMERULONEPHRITIS CHRONIC
     Route: 042
     Dates: start: 201202, end: 201207

REACTIONS (1)
  - Sepsis [Fatal]
